FAERS Safety Report 8801510 (Version 1)
Quarter: 2012Q4

REPORT INFORMATION
  Report Type: 
  Country: US (occurrence: US)
  Receive Date: 20120921
  Receipt Date: 20120921
  Transmission Date: 20130627
  Serious: Yes (Hospitalization)
  Sender: FDA-Public Use
  Company Number: US-ELI_LILLY_AND_COMPANY-US201112004228

PATIENT
  Sex: Female

DRUGS (2)
  1. FORTEO [Suspect]
     Dosage: 20 ug, qd
     Route: 065
     Dates: start: 201201, end: 201208
  2. FORTEO [Suspect]
     Dosage: 20 ug, qd

REACTIONS (8)
  - Spinal operation [Unknown]
  - Osteoarthritis [Unknown]
  - Neuralgia [Unknown]
  - Mood altered [Unknown]
  - Adverse event [Unknown]
  - Arthralgia [Unknown]
  - Incorrect storage of drug [Unknown]
  - Pain [Unknown]
